FAERS Safety Report 5238335-5 (Version None)
Quarter: 2007Q1

REPORT INFORMATION
  Report Type: 
  Country: None (occurrence: None)
  Receive Date: 20070215
  Receipt Date: 20070208
  Transmission Date: 20070707
  Serious: Yes (Hospitalization)
  Sender: FDA-Public Use
  Company Number: AU-BRISTOL-MYERS SQUIBB COMPANY-13661699

PATIENT
  Age: 80 Year
  Sex: Male
  Weight: 72 kg

DRUGS (12)
  1. CARBOPLATIN [Suspect]
     Indication: SMALL CELL LUNG CANCER STAGE UNSPECIFIED
     Route: 042
     Dates: start: 20070102, end: 20070102
  2. PEMETREXED DISODIUM [Suspect]
     Indication: SMALL CELL LUNG CANCER EXTENSIVE STAGE
     Route: 042
     Dates: start: 20070102, end: 20070102
  3. DILTIAZEM CD [Concomitant]
     Indication: HYPERTENSION
     Dates: start: 19840818
  4. INDAPAMID [Concomitant]
     Indication: HYPERTENSION
     Dates: start: 20010521
  5. ATORVASTATIN [Concomitant]
     Indication: HYPOLIPIDAEMIA
     Dates: start: 19991029
  6. COLOXYL + SENNA [Concomitant]
     Indication: CONSTIPATION
     Dates: start: 20061228
  7. CALCIUM CARBONATE [Concomitant]
     Dates: start: 20020611
  8. FOLIC ACID [Concomitant]
     Dates: start: 20061207
  9. ASPIRIN [Concomitant]
  10. OXYCONTIN [Concomitant]
     Indication: PAIN
     Dates: start: 20061228
  11. METFORMIN HCL [Concomitant]
     Indication: DIABETES MELLITUS
     Dates: start: 20011210
  12. ALUMINUM HYDROXIDE + MAGNESIUM HYDROXIDE [Concomitant]
     Indication: MINERAL SUPPLEMENTATION
     Dates: start: 20061228

REACTIONS (2)
  - DEHYDRATION [None]
  - DIARRHOEA [None]
